FAERS Safety Report 7247287-8 (Version None)
Quarter: 2011Q1

REPORT INFORMATION
  Report Type: 
  Country: None (occurrence: None)
  Receive Date: 20110127
  Receipt Date: 20110124
  Transmission Date: 20110831
  Serious: Yes (Other)
  Sender: FDA-Public Use
  Company Number: A0908610A

PATIENT
  Age: 16 Year
  Sex: Female

DRUGS (3)
  1. MULTI-VITAMIN [Concomitant]
  2. LAMICTAL [Suspect]
     Dosage: 650MG PER DAY
     Route: 048
     Dates: start: 20090601
  3. MAGNESIUM SUPPLEMENT [Concomitant]

REACTIONS (3)
  - CONVULSION [None]
  - ANTICONVULSANT DRUG LEVEL INCREASED [None]
  - DRUG INEFFECTIVE [None]
